FAERS Safety Report 20108762 (Version 4)
Quarter: 2022Q4

REPORT INFORMATION
  Report Type: Spontaneous
  Country: US (occurrence: US)
  Receive Date: 20211124
  Receipt Date: 20221214
  Transmission Date: 20230113
  Serious: Yes (Other)
  Sender: FDA-Public Use
  Company Number: US-EXELIXIS-CABO-21046179

PATIENT
  Age: 67 Year
  Sex: Male

DRUGS (5)
  1. OPDIVO [Suspect]
     Active Substance: NIVOLUMAB
     Indication: Renal cell carcinoma stage IV
     Dosage: UNK
     Route: 042
     Dates: start: 202108, end: 202111
  2. OPDIVO [Suspect]
     Active Substance: NIVOLUMAB
     Dosage: UNK
     Route: 042
     Dates: start: 202108, end: 202111
  3. OPDIVO [Suspect]
     Active Substance: NIVOLUMAB
     Dosage: UNK
     Route: 042
     Dates: start: 202112
  4. CABOMETYX [Suspect]
     Active Substance: CABOZANTINIB S-MALATE
     Indication: Renal cancer stage IV
     Dosage: 40 MILLIGRAM, QD
     Dates: start: 202108
  5. CABOMETYX [Suspect]
     Active Substance: CABOZANTINIB S-MALATE
     Dosage: 20 MILLIGRAM

REACTIONS (19)
  - Tumour necrosis [Unknown]
  - Pneumonitis [Unknown]
  - Bone neoplasm [Unknown]
  - Dry skin [Unknown]
  - Fatigue [Unknown]
  - Hypertension [Unknown]
  - Hepatic enzyme abnormal [Recovered/Resolved]
  - Peripheral coldness [Recovered/Resolved]
  - Burning sensation [Not Recovered/Not Resolved]
  - Ageusia [Recovering/Resolving]
  - Skin exfoliation [Not Recovered/Not Resolved]
  - Skin ulcer [Not Recovered/Not Resolved]
  - Pain in extremity [Unknown]
  - Arthralgia [Not Recovered/Not Resolved]
  - Weight decreased [Unknown]
  - Brain neoplasm [Unknown]
  - Lung neoplasm [Unknown]
  - General physical health deterioration [Unknown]
  - Haemorrhagic diathesis [Unknown]

NARRATIVE: CASE EVENT DATE: 20211015
